FAERS Safety Report 10744198 (Version 1)
Quarter: 2015Q1

REPORT INFORMATION
  Report Type: Spontaneous
  Country: US (occurrence: None)
  Receive Date: 20150126
  Receipt Date: 20150126
  Transmission Date: 20150721
  Serious: No
  Sender: FDA-Public Use
  Company Number: 2015-00007

PATIENT
  Age: 17 Year
  Sex: Male
  Weight: 65.77 kg

DRUGS (2)
  1. SUDAFED [Concomitant]
     Active Substance: PSEUDOEPHEDRINE HYDROCHLORIDE
  2. ZICAM COLD REMEDY [Suspect]
     Active Substance: ZINC ACETATE\ZINC GLUCONATE
     Indication: NASOPHARYNGITIS
     Dosage: ORAL, 1 DOSE
     Route: 048
     Dates: start: 20150123

REACTIONS (1)
  - Ageusia [None]

NARRATIVE: CASE EVENT DATE: 20150123
